FAERS Safety Report 7512461-X (Version None)
Quarter: 2011Q2

REPORT INFORMATION
  Report Type: 
  Country: None (occurrence: None)
  Receive Date: 20110531
  Receipt Date: 20110523
  Transmission Date: 20111010
  Serious: Yes (Other)
  Sender: FDA-Public Use
  Company Number: GB-PFIZER INC-2011111321

PATIENT
  Age: 52 Year
  Sex: Female

DRUGS (4)
  1. FLUOROURACIL [Concomitant]
     Indication: BREAST CANCER
  2. CYCLOPHOSPHAMIDE [Concomitant]
     Indication: BREAST CANCER
  3. DOTHIEPIN [Concomitant]
     Indication: DEPRESSION
  4. EPIRUBICIN HYDROCHLORIDE [Suspect]
     Indication: BREAST CANCER

REACTIONS (8)
  - CARDIOMEGALY [None]
  - RALES [None]
  - TACHYCARDIA [None]
  - MITRAL VALVE INCOMPETENCE [None]
  - LEFT VENTRICULAR DYSFUNCTION [None]
  - CARDIAC FAILURE [None]
  - GENE MUTATION IDENTIFICATION TEST POSITIVE [None]
  - APHASIA [None]
